FAERS Safety Report 6072774-8 (Version None)
Quarter: 2009Q1

REPORT INFORMATION
  Report Type: 
  Country: None (occurrence: None)
  Receive Date: 20090210
  Receipt Date: 20090129
  Transmission Date: 20090719
  Serious: Yes (Other)
  Sender: FDA-Public Use
  Company Number: US-ELI_LILLY_AND_COMPANY-US200810006867

PATIENT
  Sex: Female

DRUGS (5)
  1. CYMBALTA [Suspect]
     Indication: DEPRESSION
     Dosage: 30 MG, UNK
     Dates: start: 20080801, end: 20081026
  2. SYNTHROID [Concomitant]
  3. LIPITOR [Concomitant]
     Indication: LIPIDS
  4. KLONOPIN [Concomitant]
     Indication: SLEEP DISORDER
  5. CELEBREX [Concomitant]
     Indication: OSTEOARTHRITIS

REACTIONS (1)
  - HEPATITIS ACUTE [None]
